FAERS Safety Report 6887303-6 (Version None)
Quarter: 2010Q3

REPORT INFORMATION
  Report Type: 
  Country: None (occurrence: None)
  Receive Date: 20100730
  Receipt Date: 20090618
  Transmission Date: 20110219
  Serious: No
  Sender: FDA-Public Use
  Company Number: A0792269A

PATIENT
  Sex: Female

DRUGS (2)
  1. IMITREX [Suspect]
     Indication: MIGRAINE
     Dosage: 100MG AS REQUIRED
     Route: 048
     Dates: start: 19930101
  2. TOPAMAX [Concomitant]

REACTIONS (2)
  - BURNING SENSATION [None]
  - NASAL DISCOMFORT [None]
